FAERS Safety Report 25384710 (Version 2)
Quarter: 2025Q4

REPORT INFORMATION
  Report Type: Spontaneous
  Country: CA (occurrence: CA)
  Receive Date: 20250602
  Receipt Date: 20251117
  Transmission Date: 20260117
  Serious: Yes (Other)
  Sender: MYLAN
  Company Number: CA-MYLANLABS-2025M1046013

PATIENT
  Age: 45 Year
  Sex: Female

DRUGS (36)
  1. ATORVASTATIN [Suspect]
     Active Substance: ATORVASTATIN
     Indication: Type IIa hyperlipidaemia
     Dosage: UNK, QD (1 EVERY 1 DAYS)
  2. ATORVASTATIN [Suspect]
     Active Substance: ATORVASTATIN
     Dosage: UNK, QD (1 EVERY 1 DAYS)
     Route: 065
  3. ATORVASTATIN [Suspect]
     Active Substance: ATORVASTATIN
     Dosage: UNK, QD (1 EVERY 1 DAYS)
     Route: 065
  4. ATORVASTATIN [Suspect]
     Active Substance: ATORVASTATIN
     Dosage: UNK, QD (1 EVERY 1 DAYS)
  5. ATORVASTATIN CALCIUM [Suspect]
     Active Substance: ATORVASTATIN CALCIUM
     Indication: Type IIa hyperlipidaemia
     Dosage: UNK, QD (1 EVERY 1 DAYS)
  6. ATORVASTATIN CALCIUM [Suspect]
     Active Substance: ATORVASTATIN CALCIUM
     Dosage: UNK, QD (1 EVERY 1 DAYS)
     Route: 065
  7. ATORVASTATIN CALCIUM [Suspect]
     Active Substance: ATORVASTATIN CALCIUM
     Dosage: UNK, QD (1 EVERY 1 DAYS)
     Route: 065
  8. ATORVASTATIN CALCIUM [Suspect]
     Active Substance: ATORVASTATIN CALCIUM
     Dosage: UNK, QD (1 EVERY 1 DAYS)
  9. EVINACUMAB [Suspect]
     Active Substance: EVINACUMAB
     Indication: Type IIa hyperlipidaemia
     Dosage: UNK
  10. EVINACUMAB [Suspect]
     Active Substance: EVINACUMAB
     Dosage: UNK
  11. EVINACUMAB [Suspect]
     Active Substance: EVINACUMAB
     Dosage: UNK
     Route: 058
  12. EVINACUMAB [Suspect]
     Active Substance: EVINACUMAB
     Dosage: UNK
     Route: 058
  13. EVINACUMAB [Suspect]
     Active Substance: EVINACUMAB
     Dosage: UNK
  14. EVINACUMAB [Suspect]
     Active Substance: EVINACUMAB
     Dosage: UNK
  15. EVINACUMAB [Suspect]
     Active Substance: EVINACUMAB
     Dosage: UNK
     Route: 042
  16. EVINACUMAB [Suspect]
     Active Substance: EVINACUMAB
     Dosage: UNK
     Route: 042
  17. EVINACUMAB [Suspect]
     Active Substance: EVINACUMAB
     Indication: Type IIa hyperlipidaemia
     Dosage: 15 MG/KG
  18. EVINACUMAB [Suspect]
     Active Substance: EVINACUMAB
     Dosage: 15 MG/KG
     Route: 042
  19. EVINACUMAB [Suspect]
     Active Substance: EVINACUMAB
     Dosage: 15 MG/KG
     Route: 042
  20. EVINACUMAB [Suspect]
     Active Substance: EVINACUMAB
     Dosage: 15 MG/KG
  21. EZETIMIBE [Suspect]
     Active Substance: EZETIMIBE
     Indication: Type IIa hyperlipidaemia
     Dosage: UNK, QD (1 EVERY 1 DAYS)
  22. EZETIMIBE [Suspect]
     Active Substance: EZETIMIBE
     Dosage: UNK, QD (1 EVERY 1 DAYS)
     Route: 065
  23. EZETIMIBE [Suspect]
     Active Substance: EZETIMIBE
     Dosage: UNK, QD (1 EVERY 1 DAYS)
     Route: 065
  24. EZETIMIBE [Suspect]
     Active Substance: EZETIMIBE
     Dosage: UNK, QD (1 EVERY 1 DAYS)
  25. LOMITAPIDE [Suspect]
     Active Substance: LOMITAPIDE
     Indication: Type IIa hyperlipidaemia
     Dosage: 5 MILLIGRAM
  26. LOMITAPIDE [Suspect]
     Active Substance: LOMITAPIDE
     Dosage: 5 MILLIGRAM
  27. LOMITAPIDE [Suspect]
     Active Substance: LOMITAPIDE
     Dosage: 5 MILLIGRAM
     Route: 065
  28. LOMITAPIDE [Suspect]
     Active Substance: LOMITAPIDE
     Dosage: 5 MILLIGRAM
     Route: 065
  29. LOMITAPIDE [Suspect]
     Active Substance: LOMITAPIDE
     Dosage: 20 MILLIGRAM
  30. LOMITAPIDE [Suspect]
     Active Substance: LOMITAPIDE
     Dosage: 20 MILLIGRAM
  31. LOMITAPIDE [Suspect]
     Active Substance: LOMITAPIDE
     Dosage: 20 MILLIGRAM
     Route: 065
  32. LOMITAPIDE [Suspect]
     Active Substance: LOMITAPIDE
     Dosage: 20 MILLIGRAM
     Route: 065
  33. ROSUVASTATIN [Suspect]
     Active Substance: ROSUVASTATIN
     Indication: Type IIa hyperlipidaemia
     Dosage: UNK, QD (1 EVERY 1 DAYS)
  34. ROSUVASTATIN [Suspect]
     Active Substance: ROSUVASTATIN
     Dosage: UNK, QD (1 EVERY 1 DAYS)
     Route: 065
  35. ROSUVASTATIN [Suspect]
     Active Substance: ROSUVASTATIN
     Dosage: UNK, QD (1 EVERY 1 DAYS)
     Route: 065
  36. ROSUVASTATIN [Suspect]
     Active Substance: ROSUVASTATIN
     Dosage: UNK, QD (1 EVERY 1 DAYS)

REACTIONS (4)
  - Hepatic steatosis [Recovering/Resolving]
  - International normalised ratio increased [Recovering/Resolving]
  - Diarrhoea [Recovering/Resolving]
  - Nausea [Recovering/Resolving]
